FAERS Safety Report 21549471 (Version 3)
Quarter: 2022Q4

REPORT INFORMATION
  Report Type: Spontaneous
  Country: US (occurrence: US)
  Receive Date: 20221103
  Receipt Date: 20221125
  Transmission Date: 20230112
  Serious: No
  Sender: FDA-Public Use
  Company Number: US-SANOFI-01343528

PATIENT
  Age: 67 Year
  Sex: Female

DRUGS (4)
  1. LOVENOX [Suspect]
     Active Substance: ENOXAPARIN SODIUM
     Dosage: UNK
  2. COUMADIN [Concomitant]
     Active Substance: WARFARIN SODIUM
     Indication: Blood disorder
     Dosage: UNK
  3. ELIQUIS [Concomitant]
     Active Substance: APIXABAN
  4. PRAVASTATIN [Concomitant]
     Active Substance: PRAVASTATIN
     Indication: Arthralgia
     Dosage: 20MG, QD

REACTIONS (13)
  - Rash [Unknown]
  - Drug hypersensitivity [Unknown]
  - Arthralgia [Unknown]
  - Pain [Unknown]
  - Rash [Unknown]
  - Accident at work [Unknown]
  - Fall [Unknown]
  - Nerve compression [Unknown]
  - Tendon injury [Unknown]
  - Gait disturbance [Unknown]
  - Blood triglycerides increased [Unknown]
  - Sacroiliac joint dysfunction [Unknown]
  - Skin reaction [Unknown]

NARRATIVE: CASE EVENT DATE: 20220801
